FAERS Safety Report 20069464 (Version 1)
Quarter: 2021Q4

REPORT INFORMATION
  Report Type: Spontaneous
  Country: US (occurrence: None)
  Receive Date: 20211113
  Receipt Date: 20211113
  Transmission Date: 20220303
  Serious: Yes (Hospitalization)
  Sender: FDA-Public Use
  Company Number: None

PATIENT
  Age: 68 Year
  Sex: Female
  Weight: 45 kg

DRUGS (1)
  1. PROLIA [Suspect]
     Active Substance: DENOSUMAB
     Indication: Osteoporosis
     Dosage: OTHER FREQUENCY : 6 MONTH INJECTION;?
     Route: 058
     Dates: start: 20201230

REACTIONS (2)
  - Abdominal pain [None]
  - Pyrexia [None]

NARRATIVE: CASE EVENT DATE: 20210324
